FAERS Safety Report 7090802-8 (Version None)
Quarter: 2010Q4

REPORT INFORMATION
  Report Type: 
  Country: None (occurrence: None)
  Receive Date: 20101109
  Receipt Date: 20101105
  Transmission Date: 20110411
  Serious: Yes (Death, Other)
  Sender: FDA-Public Use
  Company Number: GR-SANOFI-AVENTIS-2010SA067442

PATIENT
  Age: 76 Year
  Sex: Male

DRUGS (8)
  1. OXALIPLATIN [Suspect]
     Indication: COLORECTAL CANCER
     Dates: start: 20071115, end: 20071115
  2. OXALIPLATIN [Suspect]
     Dates: start: 20080815, end: 20080815
  3. BEVACIZUMAB [Suspect]
     Indication: COLORECTAL CANCER
     Route: 058
  4. BEVACIZUMAB [Suspect]
     Route: 058
     Dates: start: 20080501, end: 20080501
  5. CAPECITABINE [Suspect]
     Indication: COLORECTAL CANCER
  6. IRINOTECAN HCL [Suspect]
     Indication: COLORECTAL CANCER
  7. ALL OTHER THERAPEUTIC PRODUCTS [Suspect]
     Indication: COLORECTAL CANCER
     Route: 041
     Dates: start: 20080801, end: 20080801
  8. ALL OTHER THERAPEUTIC PRODUCTS [Suspect]
     Route: 041
     Dates: start: 20090401, end: 20090401

REACTIONS (3)
  - DEATH [None]
  - DERMATITIS ACNEIFORM [None]
  - DIARRHOEA [None]
